FAERS Safety Report 9104941 (Version 6)
Quarter: 2014Q1

REPORT INFORMATION
  Report Type: Spontaneous
  Country: US (occurrence: US)
  Receive Date: 20130220
  Receipt Date: 20140124
  Transmission Date: 20141002
  Serious: Yes (Hospitalization, Other)
  Sender: FDA-Public Use
  Company Number: US-009507513-1302USA009109

PATIENT
  Sex: Female
  Weight: 68.27 kg

DRUGS (3)
  1. FOSAMAX [Suspect]
     Indication: OSTEOPOROSIS
     Dosage: 10 MG, QD
     Route: 048
     Dates: start: 1996, end: 200110
  2. FOSAMAX [Suspect]
     Dosage: 70 MG, QW
     Route: 048
     Dates: start: 200110, end: 200710
  3. LEVOTHYROXINE SODIUM [Concomitant]
     Indication: HYPOTHYROIDISM
     Dosage: 88 MICROGRAM, QD
     Dates: start: 1970

REACTIONS (43)
  - Femur fracture [Recovered/Resolved]
  - Intramedullary rod insertion [Unknown]
  - Femur fracture [Unknown]
  - Compression fracture [Unknown]
  - Fall [Unknown]
  - Vitamin D deficiency [Unknown]
  - Depression [Unknown]
  - Vertebral wedging [Unknown]
  - Hand fracture [Unknown]
  - Diverticulum [Unknown]
  - Cerebrovascular disorder [Unknown]
  - Contusion [Unknown]
  - Laceration [Unknown]
  - Gait disturbance [Unknown]
  - Fall [Unknown]
  - Diverticulum intestinal haemorrhagic [Unknown]
  - Bronchitis [Unknown]
  - Atrial fibrillation [Unknown]
  - Vitamin B12 deficiency [Unknown]
  - Eczema [Unknown]
  - Atrial fibrillation [Unknown]
  - Spinal column stenosis [Unknown]
  - Macular degeneration [Unknown]
  - Cataract operation [Unknown]
  - Visual acuity reduced [Unknown]
  - Bronchiectasis [Unknown]
  - Decreased appetite [Unknown]
  - Insomnia [Unknown]
  - Urinary tract infection bacterial [Unknown]
  - Osteoarthritis [Unknown]
  - Joint effusion [Unknown]
  - Synovial cyst [Unknown]
  - Arthroscopy [Unknown]
  - Knee arthroplasty [Unknown]
  - Cartilage injury [Unknown]
  - Knee deformity [Unknown]
  - Gastrointestinal haemorrhage [Unknown]
  - Osteoarthritis [Unknown]
  - Joint injury [Unknown]
  - Nausea [Unknown]
  - Constipation [Unknown]
  - Rash [Unknown]
  - Drug ineffective [Unknown]
